FAERS Safety Report 7139273-3 (Version None)
Quarter: 2010Q4

REPORT INFORMATION
  Report Type: 
  Country: None (occurrence: None)
  Receive Date: 20101206
  Receipt Date: 20101122
  Transmission Date: 20110411
  Serious: Yes (Death, Other)
  Sender: FDA-Public Use
  Company Number: IT-GENENTECH-283440

PATIENT

DRUGS (5)
  1. RITUXIMAB [Suspect]
     Indication: HIV INFECTION CDC GROUP IV SUBGROUP D
     Dosage: 375 MG/M2, UNK
     Route: 042
     Dates: start: 19980601
  2. CYCLOPHOSPHAMIDE [Suspect]
     Indication: HIV INFECTION CDC GROUP IV SUBGROUP D
     Dosage: 187.5 MG/M2, Q4W
     Route: 042
     Dates: start: 19980601
  3. DOXORUBICIN HCL [Suspect]
     Indication: HIV INFECTION CDC GROUP IV SUBGROUP D
     Dosage: 12.5 MG/M2, Q4W
     Route: 042
     Dates: start: 19980601
  4. ETOPOSIDE [Suspect]
     Indication: HIV INFECTION CDC GROUP IV SUBGROUP D
     Dosage: 60 MG/M2, Q4W
     Route: 042
     Dates: start: 19980601
  5. ANTIRETROVIRALS [Concomitant]
     Indication: HIV INFECTION
     Dosage: UNK
     Route: 065
     Dates: start: 19980601

REACTIONS (5)
  - ACUTE LEUKAEMIA [None]
  - METASTASIS [None]
  - NON-HODGKIN'S LYMPHOMA [None]
  - NON-HODGKIN'S LYMPHOMA RECURRENT [None]
  - TREATMENT FAILURE [None]
